FAERS Safety Report 12507462 (Version 1)
Quarter: 2016Q2

REPORT INFORMATION
  Report Type: Spontaneous
  Country: US (occurrence: None)
  Receive Date: 20160628
  Receipt Date: 20160628
  Transmission Date: 20160815
  Serious: No
  Sender: FDA-Public Use
  Company Number: None

PATIENT
  Age: 58 Year
  Sex: Female

DRUGS (1)
  1. HARVONI [Suspect]
     Active Substance: LEDIPASVIR\SOFOSBUVIR
     Indication: CHRONIC HEPATITIS C
     Dosage: 90-400MG QD ORAL
     Route: 048
     Dates: start: 20160329, end: 20160626

REACTIONS (3)
  - Drug dose omission [None]
  - Malaise [None]
  - Extra dose administered [None]

NARRATIVE: CASE EVENT DATE: 20160624
